FAERS Safety Report 20246965 (Version 1)
Quarter: 2021Q4

REPORT INFORMATION
  Report Type: Spontaneous
  Country: US (occurrence: None)
  Receive Date: 20211228
  Receipt Date: 20211228
  Transmission Date: 20220304
  Serious: Yes (Hospitalization)
  Sender: FDA-Public Use
  Company Number: None

PATIENT
  Age: 31 Year
  Sex: Female
  Weight: 111.6 kg

DRUGS (7)
  1. CYCLOPHOSPHAMIDE [Suspect]
     Active Substance: CYCLOPHOSPHAMIDE
     Dates: end: 20211117
  2. CYTARABINE [Suspect]
     Active Substance: CYTARABINE
     Dates: end: 20211128
  3. MERCAPTOPURINE [Suspect]
     Active Substance: MERCAPTOPURINE
     Dates: end: 20211201
  4. METHOTREXATE [Suspect]
     Active Substance: METHOTREXATE
     Dates: end: 20211117
  5. ONCASPAR [Suspect]
     Active Substance: PEGASPARGASE
     Dates: end: 20211201
  6. RITUXIMAB [Suspect]
     Active Substance: RITUXIMAB
     Dates: end: 20211124
  7. VINCRISTINE SULFATE [Suspect]
     Active Substance: VINCRISTINE SULFATE
     Dates: end: 20211210

REACTIONS (19)
  - Febrile neutropenia [None]
  - Cough [None]
  - Dyspnoea exertional [None]
  - Vomiting [None]
  - Vaginal haemorrhage [None]
  - Tremor [None]
  - Chills [None]
  - White blood cell count decreased [None]
  - Haemoglobin decreased [None]
  - Urine ketone body present [None]
  - Bacterial test positive [None]
  - Red blood cells urine [None]
  - Atelectasis [None]
  - Respirovirus test positive [None]
  - Fatigue [None]
  - Nausea [None]
  - Oropharyngeal pain [None]
  - Constipation [None]
  - Eastern Cooperative Oncology Group performance status worsened [None]

NARRATIVE: CASE EVENT DATE: 20211214
